FAERS Safety Report 8993142 (Version 1)
Quarter: 2013Q1

REPORT INFORMATION
  Report Type: Report from Study
  Country: DE (occurrence: DE)
  Receive Date: 20130102
  Receipt Date: 20130102
  Transmission Date: 20140127
  Serious: Yes (Hospitalization)
  Sender: FDA-Public Use
  Company Number: DE-BAXTER-2012BAX028810

PATIENT
  Age: 41 Year
  Sex: Female
  Weight: 75 kg

DRUGS (6)
  1. ENDOXAN 1G [Suspect]
     Indication: BREAST CANCER
     Route: 042
     Dates: start: 20080613, end: 20080725
  2. CAPECITABINE [Suspect]
     Indication: BREAST CANCER
     Dosage: 2 X 1000 MG/M2 APPROX 12 HOURS APART
     Route: 048
     Dates: start: 20080813, end: 20081027
  3. EPOETIN BETA [Suspect]
     Indication: PRODUCT USED FOR UNKNOWN INDICATION
     Dosage: 450 IE/KG
     Route: 065
  4. EPIRUBICIN [Suspect]
     Indication: BREAST CANCER
     Dosage: 112.5 MG/M2
     Route: 042
     Dates: start: 20080613, end: 20080725
  5. PACLITAXEL [Suspect]
     Indication: BREAST CANCER
     Dosage: 67.5 MG/M2
     Route: 042
     Dates: start: 20080808, end: 20081024
  6. DEXAMETHASONE [Suspect]
     Indication: SUPPORTIVE CARE
     Route: 065
     Dates: start: 20080613, end: 20081024

REACTIONS (1)
  - Diabetes mellitus [Recovering/Resolving]
